FAERS Safety Report 8097196-X (Version None)
Quarter: 2012Q1

REPORT INFORMATION
  Report Type: 
  Country: None (occurrence: None)
  Receive Date: 20120128
  Receipt Date: 20110715
  Transmission Date: 20120608
  Serious: No
  Sender: FDA-Public Use
  Company Number: US-ABBOTT-11P-163-0839421-00

PATIENT
  Age: 56 Year
  Sex: Female

DRUGS (5)
  1. PREDNISONE TAB [Concomitant]
     Indication: PRODUCT USED FOR UNKNOWN INDICATION
     Dosage: FOR MANY MONTHS
  2. HUMIRA [Suspect]
     Indication: CROHN'S DISEASE
     Dates: start: 20110530
  3. OMEPRAZOLE [Concomitant]
     Indication: GASTROOESOPHAGEAL REFLUX DISEASE
     Dosage: DAILY
  4. PREMARIN [Concomitant]
     Indication: PRODUCT USED FOR UNKNOWN INDICATION
     Dosage: WEEKLY
  5. LEXAPRO [Concomitant]
     Indication: ANXIETY
     Dosage: 1/2 TABLET DAILY AT BEDTIME

REACTIONS (8)
  - DIARRHOEA [None]
  - ARTHRITIS [None]
  - INJECTION SITE HAEMORRHAGE [None]
  - INCORRECT DOSE ADMINISTERED [None]
  - INJECTION SITE PAIN [None]
  - INCORRECT DRUG ADMINISTRATION DURATION [None]
  - OPEN WOUND [None]
  - PAIN IN EXTREMITY [None]
